FAERS Safety Report 19495799 (Version 2)
Quarter: 2021Q3

REPORT INFORMATION
  Report Type: Report from Study
  Country: BR (occurrence: BR)
  Receive Date: 20210706
  Receipt Date: 20210819
  Transmission Date: 20211014
  Serious: Yes (Hospitalization, Other)
  Sender: FDA-Public Use
  Company Number: NVSC2021BR150428

PATIENT
  Sex: Male
  Weight: 110 kg

DRUGS (2)
  1. ADENOSINE. [Concomitant]
     Active Substance: ADENOSINE
     Indication: CARDIAC DISORDER
     Dosage: 3 DF, QD
     Route: 048
  2. DIOVAN [Suspect]
     Active Substance: VALSARTAN
     Indication: PRODUCT USED FOR UNKNOWN INDICATION
     Dosage: 1 DF (IN NOV 2020 OR DEC 2020)
     Route: 048
     Dates: start: 2020

REACTIONS (6)
  - COVID-19 [Recovered/Resolved with Sequelae]
  - Fatigue [Not Recovered/Not Resolved]
  - Headache [Recovered/Resolved with Sequelae]
  - Oxygen saturation decreased [Recovered/Resolved with Sequelae]
  - Depression [Not Recovered/Not Resolved]
  - Blood glucose abnormal [Not Recovered/Not Resolved]
